FAERS Safety Report 16689621 (Version 1)
Quarter: 2019Q3

REPORT INFORMATION
  Report Type: Spontaneous
  Country: US (occurrence: US)
  Receive Date: 20190809
  Receipt Date: 20190809
  Transmission Date: 20191004
  Serious: Yes (Other)
  Sender: FDA-Public Use
  Company Number: US-TEVA-2019-US-1091010

PATIENT
  Age: 64 Year
  Sex: Female

DRUGS (5)
  1. TOLTERODINE [Concomitant]
     Active Substance: TOLTERODINE
     Indication: HYPERTONIC BLADDER
     Dosage: 4 MILLIGRAM DAILY;
     Route: 048
     Dates: start: 20190610, end: 20190710
  2. VENLAFAXINE ER [Concomitant]
     Active Substance: VENLAFAXINE HYDROCHLORIDE
     Indication: ANXIETY
     Route: 048
  3. OXYBUTYNIN 5 MG [Suspect]
     Active Substance: OXYBUTYNIN
     Indication: HYPERTONIC BLADDER
     Dosage: 5 MILLIGRAM DAILY;
     Route: 048
     Dates: start: 20190715, end: 20190718
  4. XANAX [Concomitant]
     Active Substance: ALPRAZOLAM
     Route: 065
  5. DEXILANT [Concomitant]
     Active Substance: DEXLANSOPRAZOLE
     Route: 065

REACTIONS (3)
  - Oral mucosal blistering [Not Recovered/Not Resolved]
  - Swollen tongue [Unknown]
  - Feeding disorder [Unknown]

NARRATIVE: CASE EVENT DATE: 20190715
